FAERS Safety Report 6158957-7 (Version None)
Quarter: 2009Q2

REPORT INFORMATION
  Report Type: 
  Country: None (occurrence: None)
  Receive Date: 20090417
  Receipt Date: 20090407
  Transmission Date: 20091009
  Serious: Yes (Hospitalization)
  Sender: FDA-Public Use
  Company Number: DE-PFIZER INC-2009194208

PATIENT

DRUGS (13)
  1. IRINOTECAN HCL [Suspect]
     Indication: COLORECTAL CANCER METASTATIC
     Dosage: 360 MG/M2, TWICE WEEKLY
     Route: 042
     Dates: start: 20081229
  2. AMOXICILLIN AND AMOXICILLIN TRIHYDRATE [Suspect]
     Dosage: UNK
     Dates: start: 20090403, end: 20090403
  3. BEVACIZUMAB [Suspect]
     Indication: COLORECTAL CANCER METASTATIC
     Dosage: 575 MG/M2, TWICE WEEKLY
     Route: 042
     Dates: start: 20081229
  4. FLUOROURACIL [Suspect]
     Indication: COLORECTAL CANCER METASTATIC
     Dosage: 800 MG/M2, TWICE WEEKLY
     Dates: start: 20081229
  5. FLUOROURACIL [Suspect]
     Dosage: 4800 MG/M2 TWICE WEEKLY
     Route: 042
     Dates: start: 20081229
  6. FOLINIC ACID [Suspect]
     Indication: COLORECTAL CANCER METASTATIC
     Dosage: 800 MG/M2, TWICE WEEKLY
     Route: 017
     Dates: start: 20081229
  7. TORSEMIDE [Concomitant]
     Dosage: 10 UNK, 1X/DAY
     Route: 048
  8. ALLOPURINOL [Concomitant]
     Dosage: 300 MG, 1X/DAY
     Route: 048
  9. BELOC MITE [Concomitant]
     Dosage: UNK
     Route: 048
  10. SURGAM [Concomitant]
     Dosage: 2X300MG-0-300MG
     Route: 048
  11. TAMSULOSIN [Concomitant]
     Dosage: 0.4 MG, 1X/DAY
  12. RAMIPRIL [Concomitant]
     Dosage: 5 MG, 2X/DAY
  13. METRONIDAZOLE [Concomitant]
     Indication: DIARRHOEA
     Dosage: UNK
     Route: 048
     Dates: start: 20090101

REACTIONS (1)
  - DRUG HYPERSENSITIVITY [None]
